FAERS Safety Report 5377678-1 (Version None)
Quarter: 2007Q3

REPORT INFORMATION
  Report Type: 
  Country: None (occurrence: None)
  Receive Date: 20070703
  Receipt Date: 20070622
  Transmission Date: 20080115
  Serious: Yes (Death, Other)
  Sender: FDA-Public Use
  Company Number: BR-PFIZER INC-2007042343

PATIENT
  Sex: Male
  Weight: 35 kg

DRUGS (9)
  1. VFEND [Suspect]
     Indication: FEBRILE NEUTROPENIA
     Route: 051
     Dates: start: 20070522, end: 20070501
  2. MEROPENEM [Concomitant]
  3. VANCOMYCIN HCL [Concomitant]
  4. DOPAMINE HCL [Concomitant]
  5. NORADRENALINE [Concomitant]
  6. OMEPRAZOLE [Concomitant]
  7. DORMONID [Concomitant]
  8. FUROSEMIDE [Concomitant]
  9. DOBUTAMINE HCL [Concomitant]

REACTIONS (2)
  - GENERAL PHYSICAL HEALTH DETERIORATION [None]
  - RENAL FAILURE [None]
